FAERS Safety Report 7537444 (Version 11)
Quarter: 2012Q4

REPORT INFORMATION
  Report Type: Report from Study
  Country: JP (occurrence: JP)
  Receive Date: 20100811
  Receipt Date: 20121106
  Transmission Date: 20130627
  Serious: Yes (Life-Threatening, Hospitalization, Other)
  Sender: FDA-Public Use
  Company Number: PHHY2010JP50217

PATIENT
  Age: 77 Year
  Sex: Female
  Weight: 36 kg

DRUGS (34)
  1. ICL670A [Suspect]
     Indication: MYELODYSPLASTIC SYNDROME
     Dosage: 750 mg, QD
     Route: 048
     Dates: start: 20090916, end: 20110403
  2. ICL670A [Suspect]
     Dosage: 625 mg, QD
     Route: 048
     Dates: start: 20110507, end: 20110518
  3. ICL670A [Suspect]
     Dosage: 625 mg, on alternate days
     Route: 048
     Dates: start: 20110519
  4. PREDNISOLONE [Suspect]
     Dosage: 8 mg, daily
     Route: 048
     Dates: end: 20090929
  5. PREDNISOLONE [Suspect]
     Dosage: 7 mg, daily
     Route: 048
     Dates: start: 20090930, end: 20100202
  6. PREDNISOLONE [Suspect]
     Dosage: 6 mg, daily
     Route: 048
     Dates: start: 20100203, end: 20100421
  7. PREDNISOLONE [Suspect]
     Dosage: 5 mg daily
     Route: 048
     Dates: start: 20100422
  8. PREDNISOLONE [Suspect]
     Dosage: 4 mg, UNK
     Route: 048
  9. REVLIMID [Suspect]
     Indication: MYELODYSPLASTIC SYNDROME
     Dosage: 5 mg, daily
     Route: 048
     Dates: start: 20110412, end: 20110502
  10. REVLIMID [Suspect]
     Dosage: 5 mg, daily
     Route: 048
     Dates: start: 20110519, end: 20110601
  11. DESFERAL [Concomitant]
     Indication: IRON OVERLOAD
     Dosage: 1000 mg, UNK
     Route: 030
     Dates: start: 20071227
  12. DESFERAL [Concomitant]
     Dosage: 1000 mg, UNK
     Route: 030
  13. DESFERAL [Concomitant]
     Dosage: 1000 mg, UNK
     Route: 030
  14. GASTER [Concomitant]
     Indication: GASTRITIS PROPHYLAXIS
     Dosage: 40 mg, UNK
     Route: 048
  15. GASTER [Concomitant]
     Dosage: 20 mg, UNK
     Route: 048
  16. NOVOLIN 30R [Concomitant]
     Dosage: 10 DF, UNK
     Dates: start: 20090826
  17. NOVOLIN 30R [Concomitant]
     Dosage: 12 DF, UNK
  18. NOVOLIN 30R [Concomitant]
     Dosage: 14 DF, UNK
  19. NOVOLIN 30R [Concomitant]
     Dosage: 10 DF, UNK
     Dates: end: 20100603
  20. RED BLOOD CELLS, CONCENTRATED [Concomitant]
     Dosage: 4 U, every three weeks
     Dates: start: 20100916, end: 20110831
  21. RED BLOOD CELLS, CONCENTRATED [Concomitant]
     Dosage: 4 U, every two weeks
  22. AMARYL [Concomitant]
     Dosage: 0.5 mg, UNK
     Route: 048
     Dates: start: 20100604, end: 20100820
  23. GLUFAST [Concomitant]
     Dosage: 40 mg, UNK
     Route: 048
     Dates: start: 20100826
  24. GLUFAST [Concomitant]
     Dosage: 20 mg, UNK
     Dates: end: 20110222
  25. BONALON [Concomitant]
     Dosage: 5 mg, UNK
     Route: 048
     Dates: start: 20100412
  26. MUCODYNE [Concomitant]
     Indication: PROPHYLAXIS
     Dosage: 1500 mg, UNK
     Route: 048
     Dates: start: 20100819
  27. KLARICID [Concomitant]
     Indication: PROPHYLAXIS
     Dosage: 200 mg, UNK
     Route: 048
     Dates: start: 20100823
  28. EQUA [Concomitant]
  29. VOGLIBOSE [Concomitant]
     Dosage: 0.6 mg, UNK
     Route: 048
     Dates: start: 20110406
  30. XALATAN [Concomitant]
  31. TIMOPTOL-XE [Concomitant]
  32. AZOPT [Concomitant]
  33. PLATELETS, HUMAN BLOOD [Concomitant]
     Dosage: 15 U, every 3 days
     Dates: start: 20110519, end: 20110605
  34. PLATELETS, HUMAN BLOOD [Concomitant]
     Dosage: 15 U, every 3 days
     Dates: start: 20100420, end: 20110511

REACTIONS (13)
  - Sepsis [Recovered/Resolved]
  - Urinary tract infection [Recovered/Resolved]
  - Pneumonia [Recovered/Resolved]
  - Herpes zoster [Unknown]
  - General physical health deterioration [Unknown]
  - Blood alkaline phosphatase increased [Not Recovered/Not Resolved]
  - Renal impairment [Recovered/Resolved]
  - Blood creatinine increased [Recovered/Resolved]
  - Pubis fracture [Recovered/Resolved]
  - Dehydration [Unknown]
  - Back pain [Unknown]
  - Neutropenia [Recovered/Resolved]
  - Thrombocytopenia [Recovered/Resolved]
